FAERS Safety Report 26012752 (Version 1)
Quarter: 2025Q4

REPORT INFORMATION
  Report Type: Spontaneous
  Country: EU (occurrence: EU)
  Receive Date: 20251107
  Receipt Date: 20251107
  Transmission Date: 20260118
  Serious: Yes (Disabling)
  Sender: TEVA
  Company Number: None

PATIENT
  Age: 63 Year
  Sex: Female
  Weight: 70 kg

DRUGS (1)
  1. PREDNISOLONE [Suspect]
     Active Substance: PREDNISOLONE
     Indication: Cardiac sarcoidosis
     Dosage: STRENGTH FROM 30 MG AND ^DOWN TO 0^. DOSAGE ACCORDING TO SCHEDULE FOR CARDIAC SARCOIDOSIS VG REGION
     Route: 065
     Dates: start: 20231130, end: 20250614

REACTIONS (19)
  - Hirsutism [Recovering/Resolving]
  - Tinnitus [Not Recovered/Not Resolved]
  - Impaired healing [Not Recovered/Not Resolved]
  - Weight increased [Recovered/Resolved with Sequelae]
  - Hyperaesthesia teeth [Recovered/Resolved]
  - Pain in jaw [Recovered/Resolved]
  - Fat tissue increased [Recovering/Resolving]
  - Headache [Recovered/Resolved]
  - Blood pressure fluctuation [Recovered/Resolved]
  - Irritable bowel syndrome [Not Recovered/Not Resolved]
  - Abdominal pain upper [Recovered/Resolved]
  - Venous oxygen saturation decreased [Not Recovered/Not Resolved]
  - Dry skin [Not Recovered/Not Resolved]
  - Dizziness [Recovered/Resolved]
  - Pain of skin [Not Recovered/Not Resolved]
  - Restless legs syndrome [Recovering/Resolving]
  - Food craving [Not Recovered/Not Resolved]
  - Decreased appetite [Not Recovered/Not Resolved]
  - Cushingoid [Recovered/Resolved]

NARRATIVE: CASE EVENT DATE: 20231201
